FAERS Safety Report 4962383-3 (Version None)
Quarter: 2006Q2

REPORT INFORMATION
  Report Type: 
  Country: None (occurrence: None)
  Receive Date: 20060404
  Receipt Date: 20060307
  Transmission Date: 20061013
  Serious: Yes (Death)
  Sender: FDA-Public Use
  Company Number: US-AMGEN-US171393

PATIENT
  Sex: Male

DRUGS (10)
  1. SENSIPAR [Suspect]
     Indication: HYPERPARATHYROIDISM SECONDARY
     Route: 048
     Dates: start: 20050815
  2. EPOGEN [Concomitant]
     Dates: start: 20030926
  3. ACCUPRIL [Concomitant]
     Dates: start: 20050428
  4. MINOXIDIL [Concomitant]
     Dates: start: 20050428
  5. FUROSEMIDE [Concomitant]
     Dates: start: 20031028
  6. ATENOLOL [Concomitant]
     Dates: start: 20050428
  7. NIFEREX [Concomitant]
     Dates: start: 20041123
  8. SEVELAMER HCL [Concomitant]
     Dates: start: 20050929
  9. VANCOMYCIN [Concomitant]
     Dates: start: 20051025
  10. RIFAMPICIN [Concomitant]
     Dates: start: 20051129

REACTIONS (2)
  - CARDIAC DISORDER [None]
  - SUDDEN DEATH [None]
